FAERS Safety Report 6812666-7 (Version None)
Quarter: 2010Q3

REPORT INFORMATION
  Report Type: 
  Country: None (occurrence: None)
  Receive Date: 20100701
  Receipt Date: 20100624
  Transmission Date: 20110219
  Serious: Yes (Life-Threatening, Hospitalization)
  Sender: FDA-Public Use
  Company Number: JP-ROCHE-709055

PATIENT
  Sex: Female
  Weight: 53.3 kg

DRUGS (11)
  1. ANEXATE [Suspect]
     Indication: PREMEDICATION
     Dosage: ROUTE REPORTED AS: IV NOS
     Route: 042
     Dates: start: 20070727, end: 20070727
  2. BUSCOPAN [Suspect]
     Indication: PREMEDICATION
     Dosage: GENERIC CONTENT WAS REPORTED AS HYOSCINE BUTYLBROMIDE
     Route: 042
     Dates: start: 20070727, end: 20070727
  3. DORMICUM (INJ) [Concomitant]
     Dates: start: 20070724
  4. CINAL [Concomitant]
     Dates: start: 20001227, end: 20070809
  5. POLYFUL [Concomitant]
     Dates: start: 20010402, end: 20070809
  6. OMEPRAL [Concomitant]
     Indication: GASTRIC ULCER
     Dates: start: 20051118, end: 20070809
  7. BIOFERMIN [Concomitant]
  8. MEVALOTIN [Concomitant]
     Indication: DYSLIPIDAEMIA
  9. LANDEL [Concomitant]
     Indication: ESSENTIAL HYPERTENSION
  10. ALFAROL [Concomitant]
     Indication: OSTEOPOROSIS
  11. GLEEVEC [Concomitant]
     Indication: CHRONIC MYELOID LEUKAEMIA
     Dates: start: 20011201, end: 20070809

REACTIONS (1)
  - AGRANULOCYTOSIS [None]
